FAERS Safety Report 24778182 (Version 2)
Quarter: 2025Q3

REPORT INFORMATION
  Report Type: Spontaneous
  Country: JP (occurrence: JP)
  Receive Date: 20241226
  Receipt Date: 20250711
  Transmission Date: 20251021
  Serious: Yes (Hospitalization, Other)
  Sender: NOVO NORDISK
  Company Number: JP-NOVOPROD-1334089

PATIENT
  Age: 73 Year
  Sex: Male

DRUGS (4)
  1. NOVORAPID [Suspect]
     Active Substance: INSULIN ASPART
     Indication: Type 2 diabetes mellitus
  2. APIDRA [Concomitant]
     Active Substance: INSULIN GLULISINE
  3. HUMALOG [Concomitant]
     Active Substance: INSULIN LISPRO
  4. HUMULIN R [Concomitant]
     Active Substance: INSULIN HUMAN

REACTIONS (3)
  - Drug hypersensitivity [Recovered/Resolved]
  - Metabolic syndrome [Recovered/Resolved]
  - Injection site erythema [Unknown]
